FAERS Safety Report 14544006 (Version 2)
Quarter: 2018Q2

REPORT INFORMATION
  Report Type: Spontaneous
  Country: US (occurrence: US)
  Receive Date: 20180216
  Receipt Date: 20180514
  Transmission Date: 20180711
  Serious: Yes (Other)
  Sender: FDA-Public Use
  Company Number: US-PFIZER INC-2018064592

PATIENT
  Age: 46 Year
  Sex: Female

DRUGS (1)
  1. PROGESTERONE W/ESTROGENS/ [Suspect]
     Active Substance: ESTROGENS\PROGESTERONE
     Indication: MENOPAUSAL SYMPTOMS
     Dosage: UNK
     Route: 061

REACTIONS (2)
  - Disease recurrence [Unknown]
  - Seizure [Unknown]
